FAERS Safety Report 8809597 (Version 1)
Quarter: 2012Q4

REPORT INFORMATION
  Report Type: 
  Country: US (occurrence: US)
  Receive Date: 20120926
  Receipt Date: 20120926
  Transmission Date: 20130627
  Serious: No
  Sender: FDA-Public Use
  Company Number: US-ASTRAZENECA-2012SE70617

PATIENT
  Age: 42 Year
  Sex: Female
  Weight: 83.5 kg

DRUGS (6)
  1. NEXIUM [Suspect]
     Indication: GASTROOESOPHAGEAL REFLUX DISEASE
     Dosage: EVERYDAY
     Route: 048
     Dates: start: 20120905
  2. BLOOD PRESSURE MEDICATION [Concomitant]
  3. ASPIRIN [Concomitant]
  4. VITAMINS [Concomitant]
  5. RITALIN [Concomitant]
  6. DIABETES MEDICATION [Concomitant]

REACTIONS (1)
  - Eye swelling [Unknown]
